FAERS Safety Report 21402357 (Version 11)
Quarter: 2022Q4

REPORT INFORMATION
  Report Type: Spontaneous
  Country: DE (occurrence: DE)
  Receive Date: 20221003
  Receipt Date: 20221229
  Transmission Date: 20230112
  Serious: Yes (Other)
  Sender: FDA-Public Use
  Company Number: DE-TORRENT-00023145

PATIENT
  Age: 29 Year
  Sex: Male

DRUGS (20)
  1. IBUPROFEN [Suspect]
     Active Substance: IBUPROFEN
     Indication: Bone pain
     Dosage: THERAPY WITH IBUPROFEN IN UNKNOWN DOSAGE WHENEVER AFFLICTED WITH BONE PAIN
     Route: 065
     Dates: start: 2016
  2. HYDROMORPHONE HYDROCHLORIDE [Suspect]
     Active Substance: HYDROMORPHONE HYDROCHLORIDE
     Indication: Pain
     Dosage: 16 MG HYDROMORPHONE IN A 24-HOUR GALENIC/ EVERY 24 HOURS
     Route: 065
     Dates: start: 2017
  3. PREGABALIN [Suspect]
     Active Substance: PREGABALIN
     Indication: Analgesic therapy
     Dosage: 150 MG IN THE MORNING AND IN THE EVENING, DOSE 300 MG
     Route: 065
     Dates: start: 2019
  4. PREGABALIN [Suspect]
     Active Substance: PREGABALIN
     Dosage: THREE TIMES A DAY; 50-50-150 MG
     Route: 065
     Dates: end: 2019
  5. PREGABALIN [Suspect]
     Active Substance: PREGABALIN
     Dosage: 300 MG, QD
     Route: 065
  6. DRONABINOL [Suspect]
     Active Substance: DRONABINOL
     Indication: Pain
     Dosage: 2.5-2.5-7.5 MG
     Route: 048
  7. DRONABINOL [Suspect]
     Active Substance: DRONABINOL
     Dosage: A DAILY DOSE OF 2.5-2.5-7.5 MG THC 10 ADMINISTERED ORALLY.
     Route: 048
     Dates: start: 2022
  8. OXYCODONE [Suspect]
     Active Substance: OXYCODONE
     Indication: Analgesic therapy
     Dosage: (30-30-40 MG)
     Route: 048
  9. OXYCODONE [Suspect]
     Active Substance: OXYCODONE
     Dosage: 100 MG, Q8H
     Route: 048
  10. OXYCODONE [Suspect]
     Active Substance: OXYCODONE
     Dosage: UNK (ORAL OPIOID THERAPY WITH PROLONGED-RELEASE OXYCODONE)
     Route: 048
  11. AMBROXOL [Suspect]
     Active Substance: AMBROXOL
     Indication: Pain
     Dosage: LOCAL THERAPY ON THE SHOULDER, UNK, (CREAM CONTAINING 20% AMBROXOL) CREAM CONTAINING 20% AMBROXOL
     Route: 065
     Dates: start: 2019
  12. AMBROXOL [Suspect]
     Active Substance: AMBROXOL
     Indication: Arthralgia
  13. MORPHINE [Suspect]
     Active Substance: MORPHINE
     Indication: Pain
     Dosage: ORAL OPIOID THERAPY/ 10 MG OF MORPHINE REQUIRED BETWEEN SIX AND EIGHT TIMES DAILY
     Route: 048
  14. AMITRIPTYLINE [Suspect]
     Active Substance: AMITRIPTYLINE
     Indication: Pain
     Dosage: 25 MG AMITRIPTYLINE AT NIGHT
     Route: 065
  15. DICLOFENAC [Suspect]
     Active Substance: DICLOFENAC
     Indication: Bone pain
     Dosage: NON-STEROIDAL ANTI-INFLAMMATORY DRUG DICLOFENAC
     Route: 065
  16. ZOLEDRONIC ACID [Suspect]
     Active Substance: ZOLEDRONIC ACID
     Indication: Pain
     Dosage: I.V. EVERY FOUR WEEKS
     Route: 042
  17. ZOLEDRONIC ACID [Suspect]
     Active Substance: ZOLEDRONIC ACID
     Route: 065
     Dates: start: 2021
  18. LENALIDOMIDE [Suspect]
     Active Substance: LENALIDOMIDE
     Indication: Immunomodulatory therapy
     Route: 065
     Dates: start: 2021
  19. LENALIDOMIDE [Suspect]
     Active Substance: LENALIDOMIDE
     Route: 065
  20. VITAMIN D NOS [Concomitant]
     Active Substance: VITAMIN D NOS
     Indication: Product used for unknown indication
     Dosage: 2000 IU VITAMIN D PER DAY
     Route: 065

REACTIONS (9)
  - Neoplasm progression [Not Recovered/Not Resolved]
  - Metastasis [Unknown]
  - Depression [Recovered/Resolved]
  - Sleep disorder [Recovering/Resolving]
  - Decreased appetite [Recovered/Resolved]
  - Condition aggravated [Recovered/Resolved]
  - Fatigue [Not Recovered/Not Resolved]
  - Somnolence [Recovered/Resolved]
  - Drug ineffective [Recovering/Resolving]

NARRATIVE: CASE EVENT DATE: 20170101
